FAERS Safety Report 9264060 (Version 1)
Quarter: 2013Q2

REPORT INFORMATION
  Report Type: Spontaneous
  Country: US (occurrence: None)
  Receive Date: 20130430
  Receipt Date: 20130430
  Transmission Date: 20140414
  Serious: Yes (Other)
  Sender: FDA-Public Use
  Company Number: None

PATIENT
  Age: 55 Year
  Sex: Female
  Weight: 82.56 kg

DRUGS (1)
  1. WARFARIN [Suspect]
     Indication: THROMBOSIS
     Dosage: 5MG  1 - 2 X DAY PO
     Route: 048
     Dates: start: 20121217, end: 20121227

REACTIONS (1)
  - Abdominal pain upper [None]
